FAERS Safety Report 14913336 (Version 2)
Quarter: 2019Q1

REPORT INFORMATION
  Report Type: Spontaneous
  Country: PT (occurrence: PT)
  Receive Date: 20180518
  Receipt Date: 20190207
  Transmission Date: 20190417
  Serious: Yes (Hospitalization, Other)
  Sender: FDA-Public Use
  Company Number: PT-SUNOVION-2018SUN002006

PATIENT

DRUGS (7)
  1. ZEBINIX [Suspect]
     Active Substance: ESLICARBAZEPINE ACETATE
     Dosage: 800 MG, BID
     Route: 048
     Dates: start: 20161008
  2. ZEBINIX [Suspect]
     Active Substance: ESLICARBAZEPINE ACETATE
     Dosage: 400 MG EVERY OTHER DAY
     Route: 065
     Dates: start: 20190128
  3. LEVETIRACETAM. [Concomitant]
     Active Substance: LEVETIRACETAM
     Indication: EPILEPSY
     Dosage: 1500 MG, BID
     Dates: start: 2010
  4. ZEBINIX [Suspect]
     Active Substance: ESLICARBAZEPINE ACETATE
     Dosage: 400 MG IN THE MORNING AND 800 MG IN THE EVENING
     Route: 065
     Dates: start: 20190114, end: 20190120
  5. ZEBINIX [Suspect]
     Active Substance: ESLICARBAZEPINE ACETATE
     Dosage: 1200 MG, QD (AT NIGHT)
     Route: 048
     Dates: start: 20160918, end: 20161007
  6. ZEBINIX [Suspect]
     Active Substance: ESLICARBAZEPINE ACETATE
     Dosage: 400 MG 2X DAY
     Route: 065
     Dates: start: 20190121, end: 20190127
  7. ZEBINIX [Suspect]
     Active Substance: ESLICARBAZEPINE ACETATE
     Indication: EPILEPSY
     Dosage: 800 MG, QD (AT NIGHT)
     Route: 048
     Dates: start: 201601, end: 20170917

REACTIONS (5)
  - Hyponatraemia [Unknown]
  - Off label use [Unknown]
  - Epilepsy [Recovered/Resolved]
  - Seizure [Unknown]
  - Prescribed overdose [Unknown]

NARRATIVE: CASE EVENT DATE: 20161008
